FAERS Safety Report 17774913 (Version 1)
Quarter: 2020Q2

REPORT INFORMATION
  Report Type: Spontaneous
  Country: US (occurrence: US)
  Receive Date: 20200513
  Receipt Date: 20200513
  Transmission Date: 20200714
  Serious: Yes (Hospitalization)
  Sender: FDA-Public Use
  Company Number: None

PATIENT
  Age: 73 Year
  Sex: Male
  Weight: 92.31 kg

DRUGS (2)
  1. DOCETAXEL 130MG IN 250ML DSW BAXTER [Suspect]
     Active Substance: DOCETAXEL
  2. CARBOPLATIN 449MG [Suspect]
     Active Substance: CARBOPLATIN
     Dates: end: 20200414

REACTIONS (5)
  - Dyspnoea [None]
  - Tachycardia [None]
  - Hypotension [None]
  - Neutrophil count decreased [None]
  - White blood cell count decreased [None]

NARRATIVE: CASE EVENT DATE: 20200424
